FAERS Safety Report 9248383 (Version 1)
Quarter: 2013Q2

REPORT INFORMATION
  Report Type: Spontaneous
  Country: US (occurrence: None)
  Receive Date: 20130419
  Receipt Date: 20130419
  Transmission Date: 20140414
  Serious: No
  Sender: FDA-Public Use
  Company Number: None

PATIENT
  Sex: Male
  Weight: 36.29 kg

DRUGS (1)
  1. GENOTROPIN MINIQUICK [Suspect]
     Dosage: UNDER THE SKIN
     Dates: start: 20120613, end: 20130315

REACTIONS (1)
  - Intracranial pressure increased [None]
